FAERS Safety Report 8169793-4 (Version None)
Quarter: 2012Q1

REPORT INFORMATION
  Report Type: 
  Country: None (occurrence: None)
  Receive Date: 20120228
  Receipt Date: 20120216
  Transmission Date: 20120608
  Serious: Yes (Hospitalization)
  Sender: FDA-Public Use
  Company Number: BE-BRISTOL-MYERS SQUIBB COMPANY-15875016

PATIENT
  Age: 65 Year
  Sex: Female
  Weight: 58 kg

DRUGS (4)
  1. IRINOTECAN HCL [Suspect]
     Indication: COLORECTAL CANCER METASTATIC
     Dosage: RECENT INFUSION: 23JUN2011
     Route: 042
     Dates: start: 20110414
  2. FLUOROURACIL [Suspect]
     Indication: COLORECTAL CANCER METASTATIC
     Dosage: 665.87MG:14APR11 3995.2MG:UNK-ONG.(IV) RECENT INFUSION: 23JUN2011
     Route: 040
     Dates: start: 20110414
  3. CETUXIMAB [Suspect]
     Indication: COLORECTAL CANCER METASTATIC
     Dosage: RECENT INFU:23JUN11
     Route: 042
     Dates: start: 20110414
  4. LEUCOVORIN CALCIUM [Suspect]
     Indication: COLORECTAL CANCER METASTATIC
     Dosage: RECENT INFUSION: 23JUN2011
     Route: 042
     Dates: start: 20110414

REACTIONS (4)
  - HYPONATRAEMIA [None]
  - DIARRHOEA [None]
  - NEUTROPENIA [None]
  - HYPOKALAEMIA [None]
